FAERS Safety Report 15118963 (Version 1)
Quarter: 2018Q3

REPORT INFORMATION
  Report Type: Spontaneous
  Country: HR (occurrence: HR)
  Receive Date: 20180709
  Receipt Date: 20180709
  Transmission Date: 20181010
  Serious: Yes (Other)
  Sender: FDA-Public Use
  Company Number: HR-TEVA-2018-HR-922735

PATIENT
  Sex: Female
  Weight: 70 kg

DRUGS (2)
  1. PAROXETINE. [Suspect]
     Active Substance: PAROXETINE
     Dosage: 200 MILLIGRAM DAILY; UNSPECIFIED
     Route: 048
     Dates: start: 20180307, end: 20180307
  2. IBUPROFEN. [Suspect]
     Active Substance: IBUPROFEN
     Dosage: 1600 MILLIGRAM DAILY; UNSPECIFIED
     Route: 048
     Dates: start: 20180307, end: 20180307

REACTIONS (3)
  - No adverse event [Unknown]
  - Intentional overdose [Unknown]
  - Suicide attempt [Unknown]

NARRATIVE: CASE EVENT DATE: 20180307
